FAERS Safety Report 5418030-X (Version None)
Quarter: 2007Q3

REPORT INFORMATION
  Report Type: 
  Country: None (occurrence: None)
  Receive Date: 20070817
  Receipt Date: 20070305
  Transmission Date: 20080115
  Serious: No
  Sender: FDA-Public Use
  Company Number: A0641888A

PATIENT
  Age: 69 Year
  Sex: Female

DRUGS (3)
  1. BEXXAR [Suspect]
     Indication: NON-HODGKIN'S LYMPHOMA
     Route: 042
     Dates: start: 20070221
  2. UNKNOWN MEDICATION [Concomitant]
  3. PROPYLTHIOURACIL [Concomitant]

REACTIONS (5)
  - DIARRHOEA [None]
  - NAUSEA [None]
  - SWELLING FACE [None]
  - URTICARIA [None]
  - VOMITING [None]
